FAERS Safety Report 4433315-1 (Version None)
Quarter: 2004Q3

REPORT INFORMATION
  Report Type: 
  Country: None (occurrence: None)
  Receive Date: 20040824
  Receipt Date: 20040803
  Transmission Date: 20050211
  Serious: Yes (Hospitalization)
  Sender: FDA-Public Use
  Company Number: 2004-03713

PATIENT
  Sex: 0

DRUGS (1)
  1. FERRLECIT [Suspect]
     Dosage: 250 MG, OVER 3 HRS,; TEST DOSE
     Dates: start: 20040701

REACTIONS (5)
  - BACK PAIN [None]
  - BLOOD PRESSURE DECREASED [None]
  - CONVULSION [None]
  - HYPERHIDROSIS [None]
  - PALLOR [None]
